FAERS Safety Report 11374436 (Version 1)
Quarter: 2015Q3

REPORT INFORMATION
  Report Type: Spontaneous
  Country: US (occurrence: None)
  Receive Date: 20150812
  Receipt Date: 20150812
  Transmission Date: 20151125
  Serious: Yes (Other)
  Sender: FDA-Public Use
  Company Number: None

PATIENT
  Age: 66 Year
  Sex: Female

DRUGS (1)
  1. MYCOPHENOLIC ACID. [Suspect]
     Active Substance: MYCOPHENOLIC ACID
     Indication: RENAL TRANSPLANT
     Dosage: 3 TABLET BID
     Route: 048
     Dates: start: 20140429

REACTIONS (3)
  - Product quality issue [None]
  - Product substitution issue [None]
  - White blood cell count decreased [None]

NARRATIVE: CASE EVENT DATE: 20150810
